FAERS Safety Report 14920628 (Version 1)
Quarter: 2018Q2

REPORT INFORMATION
  Report Type: Report from Study
  Country: US (occurrence: US)
  Receive Date: 20180521
  Receipt Date: 20180521
  Transmission Date: 20180711
  Serious: Yes (Other)
  Sender: FDA-Public Use
  Company Number: US-NAPPMUNDI-USA-2018-0143627

PATIENT
  Age: 53 Year
  Sex: Female

DRUGS (1)
  1. OXYCODONE HYDROCHLORIDE. [Suspect]
     Active Substance: OXYCODONE HYDROCHLORIDE
     Indication: PRODUCT USED FOR UNKNOWN INDICATION
     Dosage: 80 MG, Q12H
     Route: 048

REACTIONS (7)
  - Micturition disorder [Not Recovered/Not Resolved]
  - Arthralgia [Not Recovered/Not Resolved]
  - Oedema peripheral [Not Recovered/Not Resolved]
  - Somnolence [Not Recovered/Not Resolved]
  - Colonoscopy [Recovered/Resolved]
  - Urinary tract infection [Recovered/Resolved]
  - Endoscopy [Recovered/Resolved]

NARRATIVE: CASE EVENT DATE: 201805
